FAERS Safety Report 14006066 (Version 2)
Quarter: 2017Q3

REPORT INFORMATION
  Report Type: Report from Study
  Country: AR (occurrence: AR)
  Receive Date: 20170924
  Receipt Date: 20170928
  Transmission Date: 20171128
  Serious: Yes (Death, Other)
  Sender: FDA-Public Use
  Company Number: PHHY2017AR140263

PATIENT
  Age: 49 Year
  Sex: Female

DRUGS (1)
  1. COSENTYX [Suspect]
     Active Substance: SECUKINUMAB
     Indication: PSORIATIC ARTHROPATHY
     Dosage: 150 MG, QMO (EVERY 28 DAYS)
     Route: 065
     Dates: start: 20170224

REACTIONS (10)
  - Dyspnoea [Unknown]
  - Death [Fatal]
  - Pneumonia [Unknown]
  - Insomnia [Unknown]
  - Inappropriate schedule of drug administration [Unknown]
  - Feeding disorder [Unknown]
  - Fall [Unknown]
  - Generalised oedema [Unknown]
  - Rhonchi [Unknown]
  - Pain [Unknown]

NARRATIVE: CASE EVENT DATE: 20170224
